FAERS Safety Report 21671465 (Version 2)
Quarter: 2022Q4

REPORT INFORMATION
  Report Type: Report from Study
  Country: US (occurrence: US)
  Receive Date: 20221202
  Receipt Date: 20221206
  Transmission Date: 20230113
  Serious: No
  Sender: FDA-Public Use
  Company Number: US-002147023-NVSC2022US279622

PATIENT
  Age: 48 Year
  Sex: Female

DRUGS (1)
  1. KESIMPTA [Suspect]
     Active Substance: OFATUMUMAB
     Indication: Relapsing multiple sclerosis
     Dosage: 20 MG, QMO (0.4ML)
     Route: 058
     Dates: start: 20220827

REACTIONS (6)
  - Depression [Unknown]
  - Asthenia [Unknown]
  - Pain in extremity [Unknown]
  - Tremor [Unknown]
  - Influenza [Unknown]
  - Libido decreased [Unknown]

NARRATIVE: CASE EVENT DATE: 20221101
